FAERS Safety Report 7711665-0 (Version None)
Quarter: 2011Q3

REPORT INFORMATION
  Report Type: 
  Country: None (occurrence: None)
  Receive Date: 20110826
  Receipt Date: 20110719
  Transmission Date: 20111222
  Serious: No
  Sender: FDA-Public Use
  Company Number: US-BRISTOL-MYERS SQUIBB COMPANY-15910763

PATIENT
  Age: 68 Year
  Sex: Male

DRUGS (16)
  1. PROAIR HFA [Concomitant]
  2. GLUCOSAMINE [Concomitant]
  3. ONGLYZA [Suspect]
  4. VERAPAMIL [Concomitant]
  5. ASPIRIN [Concomitant]
  6. AZELASTINE HCL [Concomitant]
  7. HYDROCHLOROTHIAZIDE [Concomitant]
  8. FLUOCINONIDE [Concomitant]
  9. LORAZEPAM [Concomitant]
  10. FINASTERIDE [Concomitant]
  11. POTASSIUM [Concomitant]
  12. MUCINEX [Concomitant]
  13. FLUTICASONE PROPIONATE [Concomitant]
  14. BENADRYL [Concomitant]
  15. OMEGA [Concomitant]
  16. PRILOSEC [Concomitant]

REACTIONS (1)
  - BLOOD GLUCOSE ABNORMAL [None]
